FAERS Safety Report 6106320-7 (Version None)
Quarter: 2009Q1

REPORT INFORMATION
  Report Type: 
  Country: None (occurrence: None)
  Receive Date: 20090306
  Receipt Date: 20090224
  Transmission Date: 20090719
  Serious: Yes (Hospitalization, Other)
  Sender: FDA-Public Use
  Company Number: PHHY2009CN07068

PATIENT
  Age: 41 Year
  Sex: Female

DRUGS (3)
  1. SEBIVO [Suspect]
     Indication: ANTIVIRAL TREATMENT
     Dosage: 600 MG/DAY
     Route: 048
     Dates: start: 20080201, end: 20090220
  2. HORMONES [Concomitant]
     Dosage: UNK
  3. HORMONES [Concomitant]
     Dosage: 5 MG/DAY

REACTIONS (15)
  - ALPHA HYDROXYBUTYRATE DEHYDROGENASE INCREASED [None]
  - APOLIPOPROTEIN B INCREASED [None]
  - ASPARTATE AMINOTRANSFERASE INCREASED [None]
  - BLOOD CHOLESTEROL INCREASED [None]
  - BLOOD CREATINE PHOSPHOKINASE INCREASED [None]
  - BLOOD CREATINE PHOSPHOKINASE MB INCREASED [None]
  - BLOOD CREATININE INCREASED [None]
  - BLOOD LACTATE DEHYDROGENASE INCREASED [None]
  - GLOMERULONEPHRITIS CHRONIC [None]
  - HAEMATOCRIT DECREASED [None]
  - HEPATITIS B ANTIBODY POSITIVE [None]
  - HEPATITIS B SURFACE ANTIGEN POSITIVE [None]
  - HEPATITIS C ANTIBODY POSITIVE [None]
  - IGA NEPHROPATHY [None]
  - LOW DENSITY LIPOPROTEIN INCREASED [None]
